FAERS Safety Report 10207096 (Version 1)
Quarter: 2014Q2

REPORT INFORMATION
  Report Type: Spontaneous
  Country: US (occurrence: None)
  Receive Date: 20140528
  Receipt Date: 20140528
  Transmission Date: 20141212
  Serious: Yes (Other)
  Sender: FDA-Public Use
  Company Number: None

PATIENT
  Age: 77 Year
  Sex: Male

DRUGS (10)
  1. AZITHROMYCIN [Suspect]
     Indication: SINUS CONGESTION
     Dosage: APR 7 TO APR 13?8 PILLS?2 FIRST DAY 1 EA DAY (7 DAY
     Route: 048
  2. LOVASTATIN [Concomitant]
  3. IMDUR [Concomitant]
  4. ACE INHIBITOR [Concomitant]
  5. VIT A [Concomitant]
  6. VIT B [Concomitant]
  7. VIT C [Concomitant]
  8. VIT D [Concomitant]
  9. VIT E [Concomitant]
  10. OMEGA 3 [Concomitant]

REACTIONS (3)
  - Anosmia [None]
  - Ageusia [None]
  - Hypoacusis [None]
